FAERS Safety Report 23486912 (Version 3)
Quarter: 2024Q1

REPORT INFORMATION
  Report Type: Spontaneous
  Country: JP (occurrence: JP)
  Receive Date: 20240206
  Receipt Date: 20240305
  Transmission Date: 20240410
  Serious: No
  Sender: FDA-Public Use
  Company Number: JP-PFIZER INC-202400016667

PATIENT

DRUGS (1)
  1. ENBREL [Suspect]
     Active Substance: ETANERCEPT
     Dosage: UNK

REACTIONS (5)
  - Injury associated with device [Unknown]
  - Puncture site haemorrhage [Unknown]
  - Accidental exposure to product by child [Unknown]
  - Exposure via skin contact [Unknown]
  - Device leakage [Unknown]
